FAERS Safety Report 15938918 (Version 1)
Quarter: 2019Q1

REPORT INFORMATION
  Report Type: Spontaneous
  Country: US (occurrence: US)
  Receive Date: 20190208
  Receipt Date: 20190208
  Transmission Date: 20190417
  Serious: No
  Sender: FDA-Public Use
  Company Number: US-PFIZER INC-2019053484

PATIENT
  Age: 66 Year
  Sex: Male
  Weight: 110 kg

DRUGS (1)
  1. GLUCOTROL [Suspect]
     Active Substance: GLIPIZIDE
     Dosage: 2.5 MG, UNK

REACTIONS (1)
  - Dizziness [Unknown]
